FAERS Safety Report 25211928 (Version 2)
Quarter: 2025Q2

REPORT INFORMATION
  Report Type: Spontaneous
  Country: GB (occurrence: GB)
  Receive Date: 20250418
  Receipt Date: 20250421
  Transmission Date: 20250717
  Serious: Yes (Hospitalization, Disabling)
  Sender: ACCORD
  Company Number: GB-Accord-478883

PATIENT
  Age: 61 Year
  Sex: Female

DRUGS (2)
  1. CLOZAPINE [Suspect]
     Active Substance: CLOZAPINE
     Indication: Schizophrenia
     Dates: end: 2024
  2. VALPROIC ACID [Concomitant]
     Active Substance: VALPROIC ACID
     Indication: Epilepsy
     Route: 048

REACTIONS (14)
  - Drug level increased [Recovered/Resolved]
  - Dizziness [Recovering/Resolving]
  - Urinary incontinence [Unknown]
  - Action tremor [Unknown]
  - Mobility decreased [Recovering/Resolving]
  - Decreased appetite [Recovered/Resolved]
  - Fall [Recovering/Resolving]
  - Cognitive disorder [Recovered/Resolved]
  - Social avoidant behaviour [Recovering/Resolving]
  - Confusional state [Recovering/Resolving]
  - Loss of personal independence in daily activities [Recovering/Resolving]
  - Parkinsonian gait [Recovering/Resolving]
  - Somnolence [Recovering/Resolving]
  - Toxicity to various agents [Unknown]

NARRATIVE: CASE EVENT DATE: 20240101
